FAERS Safety Report 18199471 (Version 1)
Quarter: 2020Q3

REPORT INFORMATION
  Report Type: Report from Study
  Country: US (occurrence: US)
  Receive Date: 20200826
  Receipt Date: 20200826
  Transmission Date: 20201103
  Serious: No
  Sender: FDA-Public Use
  Company Number: US-IPSEN BIOPHARMACEUTICALS, INC.-2020-01158

PATIENT
  Age: 5 Year
  Sex: Male
  Weight: 18.1 kg

DRUGS (7)
  1. DIAZEPAM. [Concomitant]
     Active Substance: DIAZEPAM
     Indication: SEIZURE
     Dates: start: 20190822
  2. TIZANIDINE. [Concomitant]
     Active Substance: TIZANIDINE
     Dates: start: 20180925
  3. BACLOFEN. [Concomitant]
     Active Substance: BACLOFEN
     Dates: start: 20180801, end: 20180920
  4. DYSPORT [Suspect]
     Active Substance: ABOBOTULINUMTOXINA
     Indication: MUSCLE SPASTICITY
     Dosage: 500 UNITS
     Route: 065
     Dates: start: 20180522, end: 20180522
  5. RANITIDINE. [Concomitant]
     Active Substance: RANITIDINE
     Indication: GASTROOESOPHAGEAL REFLUX DISEASE
     Dates: start: 20190731
  6. BACLOFEN. [Concomitant]
     Active Substance: BACLOFEN
     Dates: start: 20180921
  7. BACLOFEN. [Concomitant]
     Active Substance: BACLOFEN
     Dates: start: 20171011, end: 20180731

REACTIONS (1)
  - Hordeolum [Unknown]

NARRATIVE: CASE EVENT DATE: 20191218
